FAERS Safety Report 25606489 (Version 1)
Quarter: 2025Q3

REPORT INFORMATION
  Report Type: Spontaneous
  Country: US (occurrence: None)
  Receive Date: 20250724
  Receipt Date: 20250724
  Transmission Date: 20251020
  Serious: Yes (Disabling)
  Sender: FDA-CTU
  Company Number: None

PATIENT
  Age: 45 Year
  Sex: Female
  Weight: 72 kg

DRUGS (5)
  1. SERTRALINE HYDROCHLORIDE [Suspect]
     Active Substance: SERTRALINE HYDROCHLORIDE
     Indication: Depression
     Dates: start: 20120101, end: 20250605
  2. VITAMIN C [Concomitant]
     Active Substance: ASCORBIC ACID
  3. MIRALAX [Concomitant]
     Active Substance: POLYETHYLENE GLYCOL 3350
  4. MAGNESIUM [Concomitant]
     Active Substance: MAGNESIUM
  5. ZINC [Concomitant]
     Active Substance: ZINC

REACTIONS (9)
  - Withdrawal syndrome [None]
  - Impaired work ability [None]
  - Akathisia [None]
  - Gastrointestinal disorder [None]
  - Pelvic floor dysfunction [None]
  - Blood glucose abnormal [None]
  - Suicidal ideation [None]
  - Insomnia [None]
  - Brain injury [None]

NARRATIVE: CASE EVENT DATE: 20190801
